FAERS Safety Report 16887512 (Version 2)
Quarter: 2021Q2

REPORT INFORMATION
  Report Type: Spontaneous
  Country: ES (occurrence: ES)
  Receive Date: 20191004
  Receipt Date: 20210503
  Transmission Date: 20210716
  Serious: Yes (Other)
  Sender: FDA-Public Use
  Company Number: ES-AUROBINDO-AUR-APL-2019-064450

PATIENT
  Age: 59 Year
  Sex: Female

DRUGS (7)
  1. DULOXETINE. [Suspect]
     Active Substance: DULOXETINE
     Indication: BACK PAIN
     Dosage: 30 MILLIGRAM
     Route: 065
  2. DULOXETINE 60 MG [Suspect]
     Active Substance: DULOXETINE
     Indication: CERVICOBRACHIAL SYNDROME
  3. ATORVASTATIN [Concomitant]
     Active Substance: ATORVASTATIN
     Indication: PRODUCT USED FOR UNKNOWN INDICATION
     Dosage: UNK
     Route: 065
  4. PAZITAL [Concomitant]
     Active Substance: ACETAMINOPHEN\TRAMADOL HYDROCHLORIDE
     Indication: PRODUCT USED FOR UNKNOWN INDICATION
     Dosage: 37.5MG/325MG
     Route: 065
  5. CELEBREX [Concomitant]
     Active Substance: CELECOXIB
     Indication: PRODUCT USED FOR UNKNOWN INDICATION
     Dosage: 200 MILLIGRAM
     Route: 065
  6. DULOXETINE 60 MG [Suspect]
     Active Substance: DULOXETINE
     Indication: BACK PAIN
     Dosage: 60 MILLIGRAM
     Route: 065
  7. DULOXETINE. [Suspect]
     Active Substance: DULOXETINE
     Indication: CERVICOBRACHIAL SYNDROME
     Dosage: 60 MILLIGRAM
     Route: 065

REACTIONS (2)
  - Laryngeal oedema [Unknown]
  - Dysphonia [Recovered/Resolved]
